FAERS Safety Report 5921318-7 (Version None)
Quarter: 2008Q4

REPORT INFORMATION
  Report Type: 
  Country: None (occurrence: None)
  Receive Date: 20081016
  Receipt Date: 20081010
  Transmission Date: 20090506
  Serious: Yes (Hospitalization)
  Sender: FDA-Public Use
  Company Number: JP-MERCK-0809USA00097

PATIENT
  Age: 73 Year
  Sex: Male
  Weight: 60 kg

DRUGS (7)
  1. LOXONIN [Suspect]
     Indication: BACK PAIN
     Route: 048
     Dates: start: 20050526, end: 20080826
  2. LOXONIN [Suspect]
     Indication: HEADACHE
     Route: 048
     Dates: start: 20050526, end: 20080826
  3. SINEMET [Suspect]
     Indication: PARKINSON'S DISEASE
     Route: 048
     Dates: start: 20070730, end: 20080826
  4. SINEMET [Suspect]
     Route: 048
     Dates: start: 20080827, end: 20080827
  5. SINEMET [Suspect]
     Route: 048
     Dates: start: 20080828
  6. PEPCID [Suspect]
     Indication: GASTRIC ULCER
     Route: 048
     Dates: start: 20030630, end: 20070830
  7. PEPCID [Suspect]
     Route: 048
     Dates: start: 20070831, end: 20080826

REACTIONS (2)
  - RENAL FAILURE ACUTE [None]
  - TUBULOINTERSTITIAL NEPHRITIS [None]
